FAERS Safety Report 11102720 (Version 1)
Quarter: 2015Q2

REPORT INFORMATION
  Report Type: Spontaneous
  Country: US (occurrence: None)
  Receive Date: 20150508
  Receipt Date: 20150508
  Transmission Date: 20150821
  Serious: No
  Sender: FDA-Public Use
  Company Number: None

PATIENT
  Age: 68 Year
  Sex: Male

DRUGS (1)
  1. SUTENT [Suspect]
     Active Substance: SUNITINIB MALATE
     Indication: RENAL CANCER
     Dosage: 14 DAYS OFF
     Route: 048
     Dates: start: 20131127

REACTIONS (2)
  - Diarrhoea [None]
  - Stomatitis [None]

NARRATIVE: CASE EVENT DATE: 20150505
